FAERS Safety Report 12936211 (Version 1)
Quarter: 2016Q4

REPORT INFORMATION
  Report Type: Spontaneous
  Country: US (occurrence: US)
  Receive Date: 20161112
  Receipt Date: 20161112
  Transmission Date: 20170207
  Serious: No
  Sender: FDA-Public Use
  Company Number: None

PATIENT
  Age: 33 Year
  Sex: Female
  Weight: 74.7 kg

DRUGS (4)
  1. CIPROFLOXACIN 500MG TABLETS [Suspect]
     Active Substance: CIPROFLOXACIN
     Indication: CYSTITIS
     Dosage: ?          QUANTITY:14 TABLET(S);?
     Route: 048
     Dates: start: 20161104, end: 20161108
  2. NECON [Concomitant]
     Active Substance: ETHINYL ESTRADIOL\NORETHINDRONE
  3. EFFEXOR [Concomitant]
     Active Substance: VENLAFAXINE HYDROCHLORIDE
  4. WELLBUTRIN [Concomitant]
     Active Substance: BUPROPION HYDROCHLORIDE

REACTIONS (11)
  - Hyperhidrosis [None]
  - Nausea [None]
  - Hunger [None]
  - Panic reaction [None]
  - Listless [None]
  - Headache [None]
  - Anxiety [None]
  - Presyncope [None]
  - Fatigue [None]
  - Dyspnoea [None]
  - Blood glucose decreased [None]

NARRATIVE: CASE EVENT DATE: 20161107
